FAERS Safety Report 6935153-4 (Version None)
Quarter: 2010Q3

REPORT INFORMATION
  Report Type: 
  Country: None (occurrence: None)
  Receive Date: 20100822
  Receipt Date: 20100816
  Transmission Date: 20110219
  Serious: Yes (Death, Hospitalization, Other)
  Sender: FDA-Public Use
  Company Number: PHHO2009CH04161

PATIENT
  Sex: Female
  Weight: 55 kg

DRUGS (9)
  1. AFINITOR [Suspect]
     Indication: METASTATIC RENAL CELL CARCINOMA
     Dosage: 10 MG / DAY
     Route: 048
     Dates: start: 20090316, end: 20090325
  2. PRAMIPEXOLE [Concomitant]
  3. DOMPERIDONE [Concomitant]
  4. ZOLPIDEM [Concomitant]
  5. ACETAMINOPHEN [Concomitant]
  6. DIAZEPAM [Concomitant]
  7. NORFLOXACIN [Concomitant]
  8. PREGABALIN [Concomitant]
  9. HYDROMORPHONE [Concomitant]

REACTIONS (15)
  - ACUTE RESPIRATORY FAILURE [None]
  - ASTHENIA [None]
  - ATELECTASIS [None]
  - BLOOD CREATININE INCREASED [None]
  - C-REACTIVE PROTEIN INCREASED [None]
  - COUGH [None]
  - DYSPNOEA [None]
  - FATIGUE [None]
  - HEPATIC ENZYME INCREASED [None]
  - HYPERAEMIA [None]
  - LUNG INFILTRATION [None]
  - METASTASES TO LUNG [None]
  - PULMONARY ARTERY THROMBOSIS [None]
  - PYREXIA [None]
  - RESPIRATORY DISORDER [None]
